FAERS Safety Report 9783141 (Version 2)
Quarter: 2014Q1

REPORT INFORMATION
  Report Type: Spontaneous
  Country: JP (occurrence: JP)
  Receive Date: 20131226
  Receipt Date: 20140109
  Transmission Date: 20141002
  Serious: Yes (Other)
  Sender: FDA-Public Use
  Company Number: JP-PFIZER INC-2013367731

PATIENT
  Age: 69 Year
  Sex: Male

DRUGS (5)
  1. LYRICA [Suspect]
     Dosage: 100 MG, 1X/DAY
     Route: 048
     Dates: start: 20130111
  2. LYRICA [Suspect]
     Dosage: 125 MG, 1X/DAY
     Route: 048
     Dates: start: 20130301, end: 20130408
  3. LYRICA [Suspect]
     Dosage: 100 MG, 1X/DAY
     Route: 048
     Dates: start: 20131006
  4. LYRICA [Suspect]
     Dosage: 125 MG, 1X/DAY
     Route: 048
     Dates: start: 20131021
  5. LYRICA [Suspect]
     Dosage: 100 MG, 2X/DAY (MORNING AND EVENING)
     Route: 048

REACTIONS (3)
  - Posterior capsule opacification [Unknown]
  - Visual acuity reduced [Unknown]
  - Asthenia [Unknown]
